FAERS Safety Report 7627973-8 (Version None)
Quarter: 2011Q3

REPORT INFORMATION
  Report Type: 
  Country: None (occurrence: None)
  Receive Date: 20110722
  Receipt Date: 20110713
  Transmission Date: 20111222
  Serious: Yes (Hospitalization)
  Sender: FDA-Public Use
  Company Number: US-BIOGENIDEC-2011BI025892

PATIENT
  Age: 35 Year
  Sex: Female

DRUGS (4)
  1. TYSABRI [Suspect]
     Indication: MULTIPLE SCLEROSIS
     Route: 042
     Dates: start: 20070808
  2. NUVIGIL [Concomitant]
     Indication: FATIGUE
  3. RITALIN [Concomitant]
     Indication: FATIGUE
  4. PROVIGIL [Concomitant]
     Indication: FATIGUE

REACTIONS (6)
  - TRAUMATIC LUNG INJURY [None]
  - COMPLICATION OF DEVICE INSERTION [None]
  - VEIN DISORDER [None]
  - DYSPNOEA [None]
  - CATHETER SITE RELATED REACTION [None]
  - IATROGENIC INJURY [None]
